FAERS Safety Report 9433066 (Version 1)
Quarter: 2013Q3

REPORT INFORMATION
  Report Type: Spontaneous
  Country: FR (occurrence: FR)
  Receive Date: 20130731
  Receipt Date: 20130731
  Transmission Date: 20140515
  Serious: Yes (Hospitalization)
  Sender: FDA-Public Use
  Company Number: -SANOFI-AVENTIS-BMS18801886

PATIENT
  Age: 92 Year
  Sex: Male

DRUGS (16)
  1. COAPROVEL FILM-COATED TABS 150/12.5 MG [Suspect]
     Indication: HYPERTENSION
     Dosage: 1DF:1TAB
     Route: 048
     Dates: start: 20120623, end: 20120629
  2. APROVEL FILM-COATED TABS 150 MG [Suspect]
     Indication: HYPERTENSION
     Route: 048
     Dates: start: 20120630, end: 20120704
  3. TRIATEC [Suspect]
     Indication: PRODUCT USED FOR UNKNOWN INDICATION
     Route: 065
     Dates: end: 20120622
  4. PROFENID [Suspect]
     Indication: PRODUCT USED FOR UNKNOWN INDICATION
     Route: 065
     Dates: end: 20120622
  5. TILDIEM [Suspect]
     Indication: HYPERTENSION
     Dosage: PROLONGED-RELEASE CAPSULE
     Route: 048
     Dates: start: 20120623, end: 20120629
  6. CORDARONE [Suspect]
     Indication: ARRHYTHMIA
     Dosage: SCORED TABLET
     Route: 048
     Dates: start: 20120619, end: 20120704
  7. LOXEN [Suspect]
     Indication: HYPERTENSION
     Route: 065
     Dates: end: 20120622
  8. ESIDREX [Suspect]
     Indication: HYPERTENSION
     Route: 065
     Dates: start: 20120630, end: 20120704
  9. EUPRESSYL [Suspect]
     Indication: PRODUCT USED FOR UNKNOWN INDICATION
     Route: 065
     Dates: start: 20120629, end: 20120704
  10. LERCAN [Suspect]
     Indication: PRODUCT USED FOR UNKNOWN INDICATION
     Route: 065
     Dates: start: 20120629, end: 20120704
  11. KARDEGIC [Concomitant]
     Indication: CARDIOVASCULAR EVENT PROPHYLAXIS
     Dosage: 160 MG, POWDER FOR ORAL SOLN?KARDEGIC 75 MG, POWDER FOR ORAL SOLN 29JUN12
     Route: 048
     Dates: start: 20120619, end: 20120704
  12. PARIET [Concomitant]
     Dosage: GASTRO-RESISTANT TABLET
     Dates: start: 20120618, end: 20120711
  13. SODIUM CITRATE/SODIUM LAURYL SULFOACETATE [Concomitant]
     Indication: CONSTIPATION
     Route: 054
     Dates: start: 20120620, end: 20120711
  14. FORLAX [Concomitant]
     Indication: CONSTIPATION
     Route: 048
     Dates: start: 20120629, end: 20120711
  15. TRANSIPEG [Concomitant]
     Route: 048
     Dates: start: 20120620, end: 20120629
  16. EFFERALGAN CODEINE [Concomitant]
     Route: 048
     Dates: start: 20120618, end: 20120629

REACTIONS (2)
  - Bradycardia [Unknown]
  - Renal failure [Unknown]
